FAERS Safety Report 5235296-X (Version None)
Quarter: 2007Q1

REPORT INFORMATION
  Report Type: 
  Country: None (occurrence: None)
  Receive Date: 20061208
  Receipt Date: 20060710
  Transmission Date: 20070707
  Serious: Yes (Other)
  Sender: FDA-Public Use
  Company Number: 2006UW14141

PATIENT
  Age: 51 Year
  Sex: Female
  Weight: 63.956 kg

DRUGS (4)
  1. CRESTOR [Suspect]
     Indication: BLOOD CHOLESTEROL INCREASED
     Dosage: 20 MG PO
     Route: 048
     Dates: start: 20050701
  2. VITAMIN CAP [Concomitant]
  3. FISH OIL [Concomitant]
  4. BABY ACETYLSALICYLIC ACID [Concomitant]

REACTIONS (1)
  - AGEUSIA [None]
